FAERS Safety Report 9767472 (Version 3)
Quarter: 2014Q1

REPORT INFORMATION
  Report Type: Spontaneous
  Country: PL (occurrence: PL)
  Receive Date: 20131217
  Receipt Date: 20140130
  Transmission Date: 20141002
  Serious: Yes (Life-Threatening, Hospitalization)
  Sender: FDA-Public Use
  Company Number: PL-VERTEX PHARMACEUTICALS INC-2013-011835

PATIENT
  Age: 63 Year
  Sex: Female
  Weight: 52 kg

DRUGS (4)
  1. INCIVO [Suspect]
     Indication: HEPATITIS C
     Dosage: 2250 MG, QD
     Route: 048
     Dates: start: 20120229, end: 20120522
  2. PEGINTRON [Suspect]
     Indication: HEPATITIS C
     Dosage: 80 MG, QW
     Route: 058
     Dates: start: 20120229
  3. PEGINTRON [Suspect]
     Dosage: 80 MG, QW
     Route: 058
     Dates: end: 20120911
  4. REBETOL [Suspect]
     Indication: HEPATITIS C
     Dosage: DOSAGE FORM: UNSPECIFIED
     Route: 048
     Dates: start: 20120229, end: 20120911

REACTIONS (4)
  - Pneumonia [Recovered/Resolved]
  - Urinary tract infection [Recovered/Resolved]
  - Escherichia sepsis [Recovered/Resolved]
  - Anaemia [Recovered/Resolved]
